FAERS Safety Report 7391044-9 (Version None)
Quarter: 2011Q2

REPORT INFORMATION
  Report Type: 
  Country: None (occurrence: None)
  Receive Date: 20110404
  Receipt Date: 20110322
  Transmission Date: 20111010
  Serious: Yes (Death)
  Sender: FDA-Public Use
  Company Number: US-CELGENEUS-163-21880-11022567

PATIENT
  Sex: Female

DRUGS (7)
  1. DILAUDID [Concomitant]
     Route: 065
  2. ADVAIR DISKUS 100/50 [Concomitant]
     Route: 065
  3. IRON [Concomitant]
     Route: 065
  4. METOPROLOL [Concomitant]
     Route: 065
  5. OXYCODONE [Concomitant]
     Route: 065
  6. CALCIUM [Concomitant]
     Route: 065
  7. REVLIMID [Suspect]
     Indication: MULTIPLE MYELOMA
     Dosage: 25 MILLIGRAM
     Route: 048
     Dates: start: 20110112, end: 20110101

REACTIONS (2)
  - MULTIPLE MYELOMA [None]
  - CARDIO-RESPIRATORY ARREST [None]
